FAERS Safety Report 11105693 (Version 1)
Quarter: 2015Q2

REPORT INFORMATION
  Report Type: Spontaneous
  Country: DE (occurrence: DE)
  Receive Date: 20150512
  Receipt Date: 20150512
  Transmission Date: 20150821
  Serious: Yes (Death, Life-Threatening, Hospitalization, Other)
  Sender: FDA-Public Use
  Company Number: DE-ASTRAZENECA-2015SE43088

PATIENT
  Age: 27017 Day
  Sex: Male

DRUGS (9)
  1. NORSPAN [Concomitant]
     Active Substance: BUPRENORPHINE
     Dosage: 10/6, ONCE A WEEK
  2. ZOPLICON [Concomitant]
     Dosage: 2.6, DAILY
  3. L-THYROX [Concomitant]
     Active Substance: LEVOTHYROXINE SODIUM
     Dosage: 75, DAILY
  4. CAPRELSA [Suspect]
     Active Substance: VANDETANIB
     Indication: THYROID CANCER METASTATIC
     Route: 048
     Dates: start: 20131112, end: 201403
  5. DEXAMETHASON [Concomitant]
     Active Substance: DEXAMETHASONE
     Dosage: 4, EVERY EIGHT HOURS
  6. TOREM 10 [Suspect]
     Active Substance: TORSEMIDE
     Dosage: DAILY
     Route: 065
  7. RAMIPRIL/HCT [Concomitant]
     Dosage: 5/12.5, 2.5/6.25 TWO TIMES A DAY
  8. KALZIUM [Concomitant]
     Dosage: 1000, DAILY
  9. MCP [Concomitant]
     Active Substance: METOCLOPRAMIDE HYDROCHLORIDE
     Dosage: 10, THREE TIMES A DAY

REACTIONS (4)
  - Cardiac failure [Fatal]
  - Constipation [Unknown]
  - Cytotoxic cardiomyopathy [Unknown]
  - Vomiting [Unknown]

NARRATIVE: CASE EVENT DATE: 20140422
